FAERS Safety Report 6212910-3 (Version None)
Quarter: 2009Q2

REPORT INFORMATION
  Report Type: 
  Country: None (occurrence: None)
  Receive Date: 20090601
  Receipt Date: 20090601
  Transmission Date: 20091009
  Serious: Yes (Hospitalization)
  Sender: FDA-Public Use
  Company Number: None

PATIENT
  Age: 49 Year
  Sex: Female
  Weight: 64.4 kg

DRUGS (2)
  1. VANCOMYCIN HCL [Suspect]
     Indication: ENDOCARDITIS STAPHYLOCOCCAL
     Dosage: 1 GM BID IV
     Route: 042
     Dates: start: 20090427, end: 20090517
  2. DAPTOMYCIN [Suspect]
     Indication: ENDOCARDITIS STAPHYLOCOCCAL
     Dosage: 500 MG EVERY DAY IV
     Route: 042
     Dates: start: 20090520, end: 20090521

REACTIONS (2)
  - DRUG RASH WITH EOSINOPHILIA AND SYSTEMIC SYMPTOMS [None]
  - HEPATIC ENZYME INCREASED [None]
